FAERS Safety Report 5062402-2 (Version None)
Quarter: 2006Q3

REPORT INFORMATION
  Report Type: 
  Country: None (occurrence: None)
  Receive Date: 20060721
  Receipt Date: 20060703
  Transmission Date: 20061208
  Serious: Yes (Death, Hospitalization)
  Sender: FDA-Public Use
  Company Number: TW200605002524

PATIENT
  Age: 82 Year
  Sex: Male
  Weight: 61 kg

DRUGS (4)
  1. ALIMTA [Suspect]
     Indication: LUNG NEOPLASM MALIGNANT
     Dosage: 850 MG/M2, UNK; INTRAVENOUS
     Route: 042
     Dates: start: 20060420, end: 20060420
  2. FOLIC ACID [Concomitant]
  3. DEXAMETHASONE TAB [Concomitant]
  4. CYANOCOBALAMIN [Concomitant]

REACTIONS (13)
  - BLOOD CREATININE DECREASED [None]
  - BLOOD POTASSIUM DECREASED [None]
  - BLOOD SODIUM DECREASED [None]
  - BLOOD UREA INCREASED [None]
  - CATHETER RELATED INFECTION [None]
  - COLITIS [None]
  - DECREASED APPETITE [None]
  - DEHYDRATION [None]
  - DEPRESSED LEVEL OF CONSCIOUSNESS [None]
  - DIARRHOEA [None]
  - ENTEROCOCCAL BACTERAEMIA [None]
  - INFECTION [None]
  - JAUNDICE [None]
